FAERS Safety Report 10946747 (Version 2)
Quarter: 2015Q2

REPORT INFORMATION
  Report Type: Spontaneous
  Country: JP (occurrence: JP)
  Receive Date: 20150323
  Receipt Date: 20150507
  Transmission Date: 20150821
  Serious: Yes (Hospitalization)
  Sender: FDA-Public Use
  Company Number: JP-BAYER-2015-042336

PATIENT
  Age: 71 Year
  Sex: Male

DRUGS (3)
  1. BAYASPIRIN [Suspect]
     Active Substance: ASPIRIN
     Indication: MYOCARDIAL INFARCTION
     Route: 048
  2. PREDNISOLONE. [Concomitant]
     Active Substance: PREDNISOLONE
     Indication: FAT EMBOLISM
     Dosage: UNK
  3. CALCIUM GLUCONATE. [Concomitant]
     Active Substance: CALCIUM GLUCONATE
     Dosage: CALCIUM GLUCONATE 8.5% (5 ML)

REACTIONS (3)
  - Hyperkalaemia [Recovering/Resolving]
  - Hypoaesthesia [Recovering/Resolving]
  - Electrocardiogram T wave peaked [Recovering/Resolving]
